FAERS Safety Report 20889060 (Version 1)
Quarter: 2022Q2

REPORT INFORMATION
  Report Type: Spontaneous
  Country: IN (occurrence: IN)
  Receive Date: 20220530
  Receipt Date: 20220530
  Transmission Date: 20220721
  Serious: Yes (Hospitalization, Other)
  Sender: FDA-Public Use
  Company Number: IN-ALVOGEN-2022-ALVOGEN-120432

PATIENT
  Age: 56 Year
  Sex: Male

DRUGS (1)
  1. DISULFIRAM [Suspect]
     Active Substance: DISULFIRAM
     Indication: Product used for unknown indication
     Dosage: 250 MG TABLET 8 H BEFORE HIS ALCOHOL INTAKE

REACTIONS (4)
  - Subendocardial ischaemia [Recovered/Resolved]
  - Acute coronary syndrome [Recovered/Resolved]
  - Alcohol interaction [Recovered/Resolved]
  - Prescription drug used without a prescription [Recovered/Resolved]
